FAERS Safety Report 16827398 (Version 1)
Quarter: 2019Q4

REPORT INFORMATION
  Report Type: Spontaneous
  Country: US (occurrence: US)
  Receive Date: 20190919
  Receipt Date: 20190919
  Transmission Date: 20200122
  Serious: No
  Sender: FDA-Public Use
  Company Number: None

PATIENT
  Age: 30 Year
  Sex: Female
  Weight: 53 kg

DRUGS (18)
  1. FERAHEME [Suspect]
     Active Substance: FERUMOXYTOL NON-STOICHIOMETRIC MAGNETITE
     Indication: TARGETED CANCER THERAPY
     Dosage: ?          OTHER FREQUENCY:ONCE;?
     Route: 042
  2. ETONOGESTREL [Concomitant]
     Active Substance: ETONOGESTREL
  3. LORAZEPAM. [Concomitant]
     Active Substance: LORAZEPAM
  4. MULTIVITAMIN [Concomitant]
     Active Substance: VITAMINS
  5. TUMS [Concomitant]
     Active Substance: CALCIUM CARBONATE
  6. RIVAROXABAN [Concomitant]
     Active Substance: RIVAROXABAN
  7. FERAHEME [Suspect]
     Active Substance: FERUMOXYTOL NON-STOICHIOMETRIC MAGNETITE
     Indication: ANAEMIA
     Dosage: ?          OTHER FREQUENCY:ONCE;?
     Route: 042
  8. OXYCODONE [Concomitant]
     Active Substance: OXYCODONE
  9. CINVANTI [Concomitant]
     Active Substance: APREPITANT
  10. FERAHEME [Suspect]
     Active Substance: FERUMOXYTOL NON-STOICHIOMETRIC MAGNETITE
     Indication: IRON DEFICIENCY
     Dosage: ?          OTHER FREQUENCY:ONCE;?
     Route: 042
  11. OXALIPLATIN. [Concomitant]
     Active Substance: OXALIPLATIN
  12. DULOXETINE. [Concomitant]
     Active Substance: DULOXETINE
  13. ONDANSETRON [Concomitant]
     Active Substance: ONDANSETRON
  14. LEUCOVORIN. [Concomitant]
     Active Substance: LEUCOVORIN
  15. FLUOROURACIL. [Concomitant]
     Active Substance: FLUOROURACIL
  16. ALOXI [Concomitant]
     Active Substance: PALONOSETRON HYDROCHLORIDE
  17. HEPARIN 100 UNITS/ML FLUSH [Concomitant]
  18. DEXAMETHASONE. [Concomitant]
     Active Substance: DEXAMETHASONE

REACTIONS (3)
  - Flushing [None]
  - Dyspnoea [None]
  - Infusion related reaction [None]

NARRATIVE: CASE EVENT DATE: 20190918
